FAERS Safety Report 15866029 (Version 4)
Quarter: 2020Q1

REPORT INFORMATION
  Report Type: Spontaneous
  Country: US (occurrence: US)
  Receive Date: 20190125
  Receipt Date: 20200311
  Transmission Date: 20200409
  Serious: Yes (Hospitalization, Other)
  Sender: FDA-Public Use
  Company Number: US-ASTRAZENECA-2019SE09533

PATIENT
  Age: 20418 Day
  Sex: Female
  Weight: 49.4 kg

DRUGS (24)
  1. PROMETHAZINE [Concomitant]
     Active Substance: PROMETHAZINE HYDROCHLORIDE
     Dosage: 25.0MG UNKNOWN
     Route: 048
     Dates: start: 20110307
  2. CITALOPRAM [Concomitant]
     Active Substance: CITALOPRAM HYDROBROMIDE
     Dosage: 40.0MG UNKNOWN
     Route: 048
     Dates: start: 20110609
  3. WARFARIN [Concomitant]
     Active Substance: WARFARIN
  4. NEXIUM [Suspect]
     Active Substance: ESOMEPRAZOLE MAGNESIUM
     Indication: GASTROOESOPHAGEAL REFLUX DISEASE
     Route: 048
     Dates: start: 2011, end: 2017
  5. AZITHROMYCIN ANHYDROUS. [Concomitant]
     Active Substance: AZITHROMYCIN ANHYDROUS
     Dosage: 250.0MG UNKNOWN
     Route: 048
     Dates: start: 20121211
  6. ESTRADIOL. [Concomitant]
     Active Substance: ESTRADIOL
  7. SMX/TMP [Concomitant]
     Active Substance: SULFAMETHOXAZOLE\TRIMETHOPRIM
  8. HYDROCHLOROTHIAZIDE. [Concomitant]
     Active Substance: HYDROCHLOROTHIAZIDE
  9. CHLORTHALIDONE. [Concomitant]
     Active Substance: CHLORTHALIDONE
  10. NEXIUM [Suspect]
     Active Substance: ESOMEPRAZOLE MAGNESIUM
     Indication: GASTROOESOPHAGEAL REFLUX DISEASE
     Route: 048
     Dates: start: 20121220
  11. PANTOPRAZOLE [Suspect]
     Active Substance: PANTOPRAZOLE
     Route: 065
     Dates: start: 2011, end: 2017
  12. OXYCODONE [Concomitant]
     Active Substance: OXYCODONE
     Dosage: 5-325
     Route: 048
     Dates: start: 20121116
  13. TUMS [Concomitant]
     Active Substance: CALCIUM CARBONATE
  14. PRILOSEC [Suspect]
     Active Substance: OMEPRAZOLE MAGNESIUM
     Indication: GASTROOESOPHAGEAL REFLUX DISEASE
     Route: 048
     Dates: start: 2011, end: 2017
  15. PEPCID [Concomitant]
     Active Substance: FAMOTIDINE
  16. ACETAMINOPHEN. [Concomitant]
     Active Substance: ACETAMINOPHEN
  17. ROLAIDS [Concomitant]
     Active Substance: CALCIUM CARBONATE\MAGNESIUM HYDROXIDE
  18. PEPTO-BISMOL [Concomitant]
     Active Substance: BISMUTH SUBSALICYLATE
  19. OXYCODONE-ACETAMINOPHEN [Concomitant]
     Active Substance: ACETAMINOPHEN\OXYCODONE HYDROCHLORIDE
     Dates: start: 20110818
  20. ATENOLOL. [Concomitant]
     Active Substance: ATENOLOL
     Dosage: 100-25MG
     Route: 048
     Dates: start: 20121121
  21. LYRICA [Concomitant]
     Active Substance: PREGABALIN
     Dosage: 150.0MG UNKNOWN
     Route: 048
     Dates: start: 20130228
  22. LISINOPRIL. [Concomitant]
     Active Substance: LISINOPRIL
  23. LORAZEPAM. [Concomitant]
     Active Substance: LORAZEPAM
     Dosage: 2.0MG UNKNOWN
     Route: 048
     Dates: start: 20121112
  24. TEMAZEPAM. [Concomitant]
     Active Substance: TEMAZEPAM
     Dosage: 30.0MG UNKNOWN
     Route: 048
     Dates: start: 20110321

REACTIONS (5)
  - Rebound acid hypersecretion [Unknown]
  - End stage renal disease [Unknown]
  - Renal failure [Not Recovered/Not Resolved]
  - Chronic kidney disease [Not Recovered/Not Resolved]
  - Acute kidney injury [Unknown]

NARRATIVE: CASE EVENT DATE: 20131011
